FAERS Safety Report 7089434-7 (Version None)
Quarter: 2010Q4

REPORT INFORMATION
  Report Type: 
  Country: None (occurrence: None)
  Receive Date: 20101029
  Receipt Date: 20101025
  Transmission Date: 20110411
  Serious: Yes (Other)
  Sender: FDA-Public Use
  Company Number: 2010SP056881

PATIENT
  Age: 28 Year
  Sex: Male
  Weight: 102 kg

DRUGS (1)
  1. NASONEX [Suspect]
     Indication: RHINITIS
     Dosage: NAS
     Route: 045
     Dates: start: 20100701, end: 20101013

REACTIONS (2)
  - BLOOD PRESSURE INCREASED [None]
  - TACHYCARDIA [None]
